FAERS Safety Report 4533643-5 (Version None)
Quarter: 2004Q4

REPORT INFORMATION
  Report Type: 
  Country: None (occurrence: None)
  Receive Date: 20041221
  Receipt Date: 20041214
  Transmission Date: 20050328
  Serious: Yes (Hospitalization)
  Sender: FDA-Public Use
  Company Number: 200421885GDDC

PATIENT
  Age: 43 Year
  Sex: Female

DRUGS (3)
  1. NICODERM CQ [Suspect]
     Route: 062
     Dates: start: 20040501, end: 20040501
  2. CARBAMAZEPINE [Concomitant]
     Route: 048
     Dates: end: 19840101
  3. VALPROATE [Concomitant]
     Route: 048
     Dates: end: 19840101

REACTIONS (9)
  - BLINDNESS UNILATERAL [None]
  - CARDIAC ARREST [None]
  - CEREBROVASCULAR ACCIDENT [None]
  - CONFUSIONAL STATE [None]
  - FATIGUE [None]
  - FEELING ABNORMAL [None]
  - LOSS OF CONSCIOUSNESS [None]
  - MYOCARDIAL INFARCTION [None]
  - VOMITING [None]
